FAERS Safety Report 7471193-7 (Version None)
Quarter: 2011Q2

REPORT INFORMATION
  Report Type: 
  Country: None (occurrence: None)
  Receive Date: 20110510
  Receipt Date: 20110428
  Transmission Date: 20111010
  Serious: Yes (Death, Hospitalization)
  Sender: FDA-Public Use
  Company Number: US-ACTELION-A-NJ2011-47467

PATIENT

DRUGS (2)
  1. TRACLEER [Suspect]
     Indication: PULMONARY ARTERIAL HYPERTENSION
     Dosage: UNK
     Route: 048
     Dates: start: 20070212, end: 20110409
  2. CALCIUM CHANNEL BLOCKERS [Concomitant]

REACTIONS (3)
  - LOWER LIMB FRACTURE [None]
  - AORTIC DISSECTION [None]
  - FALL [None]
